FAERS Safety Report 19786889 (Version 2)
Quarter: 2021Q3

REPORT INFORMATION
  Report Type: Spontaneous
  Country: IN (occurrence: IN)
  Receive Date: 20210903
  Receipt Date: 20210920
  Transmission Date: 20211014
  Serious: No
  Sender: FDA-Public Use
  Company Number: IN-LUPIN LIMITED-2021-16332

PATIENT
  Age: 78 Year
  Sex: Male
  Weight: 50 kg

DRUGS (2)
  1. ECOSPORINE [Concomitant]
     Indication: BLOOD DISORDER
     Dosage: 150 MILLIGRAM, QD
     Route: 065
  2. EPILIVE FILM C.TABS 500 MG [Suspect]
     Active Substance: LEVETIRACETAM
     Indication: DIZZINESS
     Dosage: 1 DOSAGE FORM, QD (1 TABLET AT NIGHT)
     Route: 048

REACTIONS (2)
  - Somnolence [Recovered/Resolved]
  - Product use in unapproved indication [Unknown]
